FAERS Safety Report 5054531-4 (Version None)
Quarter: 2006Q3

REPORT INFORMATION
  Report Type: 
  Country: None (occurrence: None)
  Receive Date: 20060714
  Receipt Date: 20060704
  Transmission Date: 20061208
  Serious: Yes (Other)
  Sender: FDA-Public Use
  Company Number: 2006083427

PATIENT
  Sex: 0

DRUGS (2)
  1. XALATAN [Suspect]
     Indication: OCULAR HYPERTENSION
  2. XALCOM [Suspect]
     Indication: OCULAR HYPERTENSION

REACTIONS (1)
  - INTRAOCULAR PRESSURE INCREASED [None]
